FAERS Safety Report 25699921 (Version 1)
Quarter: 2025Q3

REPORT INFORMATION
  Report Type: Report from Study
  Country: US (occurrence: US)
  Receive Date: 20250819
  Receipt Date: 20250819
  Transmission Date: 20251021
  Serious: Yes (Death, Other)
  Sender: TAKEDA
  Company Number: US-TAKEDA-2025TUS072611

PATIENT
  Age: 74 Year
  Sex: Female

DRUGS (21)
  1. FRUQUINTINIB [Suspect]
     Active Substance: FRUQUINTINIB
     Indication: Rectal cancer
  2. ELIQUIS [Concomitant]
     Active Substance: APIXABAN
  3. ASCORBIC ACID [Concomitant]
     Active Substance: ASCORBIC ACID
  4. DOCUSATE SODIUM [Concomitant]
     Active Substance: DOCUSATE SODIUM
  5. FAMOTIDINE [Concomitant]
     Active Substance: FAMOTIDINE
  6. FERROUS SULFATE [Concomitant]
     Active Substance: FERROUS SULFATE
  7. FUROSEMIDE [Concomitant]
     Active Substance: FUROSEMIDE
  8. GABAPENTIN [Concomitant]
     Active Substance: GABAPENTIN
  9. LACTULOSE [Concomitant]
     Active Substance: LACTULOSE
  10. MIDODRINE [Concomitant]
     Active Substance: MIDODRINE
  11. MORPHINE [Concomitant]
     Active Substance: MORPHINE
  12. NYSTATIN [Concomitant]
     Active Substance: NYSTATIN
  13. MIRALAX [Concomitant]
     Active Substance: POLYETHYLENE GLYCOL 3350
  14. POTASSIUM CHLORIDE [Concomitant]
     Active Substance: POTASSIUM CHLORIDE
  15. SENNA LAXATIVE [Concomitant]
     Active Substance: SENNOSIDES
  16. SILVADENE [Concomitant]
     Active Substance: SILVER SULFADIAZINE
  17. TRAMADOL [Concomitant]
     Active Substance: TRAMADOL
  18. TYLENOL [Concomitant]
     Active Substance: ACETAMINOPHEN
  19. IRINOTECAN [Concomitant]
     Active Substance: IRINOTECAN
  20. BEVACIZUMAB [Concomitant]
     Active Substance: BEVACIZUMAB
  21. MEDROL [Concomitant]
     Active Substance: METHYLPREDNISOLONE

REACTIONS (2)
  - Death [Fatal]
  - Product dose omission issue [Recovered/Resolved]

NARRATIVE: CASE EVENT DATE: 20250816
